FAERS Safety Report 5402759-3 (Version None)
Quarter: 2007Q3

REPORT INFORMATION
  Report Type: 
  Country: None (occurrence: None)
  Receive Date: 20070730
  Receipt Date: 20070730
  Transmission Date: 20080115
  Serious: Yes (Hospitalization)
  Sender: FDA-Public Use
  Company Number: None

PATIENT
  Sex: Male
  Weight: 87.27 kg

DRUGS (4)
  1. TAXOTERE [Suspect]
     Dosage: 300 MG
  2. LEUPROLIDE ACETATE [Suspect]
     Dosage: 67.5 MG; 22.5 MG Q 3 MONTHS
  3. PREDNISONE TAB [Suspect]
     Dosage: 290 MG; 10 MG PO QD
  4. CASODEX [Suspect]
     Dosage: 5600 MG

REACTIONS (5)
  - CHEST PAIN [None]
  - DYSURIA [None]
  - FATIGUE [None]
  - HOT FLUSH [None]
  - WHITE BLOOD CELL COUNT DECREASED [None]
